FAERS Safety Report 22147186 (Version 1)
Quarter: 2023Q1

REPORT INFORMATION
  Report Type: Report from Study
  Country: US (occurrence: US)
  Receive Date: 20230328
  Receipt Date: 20230328
  Transmission Date: 20230418
  Serious: Yes (Other)
  Sender: FDA-Public Use
  Company Number: US-002147023-NVSC2023US065256

PATIENT
  Sex: Female

DRUGS (1)
  1. ENTRESTO [Suspect]
     Active Substance: SACUBITRIL\VALSARTAN
     Indication: Product used for unknown indication
     Dosage: UNK (SEVERAL YEARS AGO)
     Route: 065

REACTIONS (5)
  - Breast cancer [Unknown]
  - Fall [Unknown]
  - Head injury [Unknown]
  - Limb discomfort [Unknown]
  - Mobility decreased [Unknown]
